FAERS Safety Report 18090032 (Version 1)
Quarter: 2020Q3

REPORT INFORMATION
  Report Type: Spontaneous
  Country: US (occurrence: US)
  Receive Date: 20200730
  Receipt Date: 20200730
  Transmission Date: 20201103
  Serious: No
  Sender: FDA-Public Use
  Company Number: US-SA-2020SA195975

PATIENT

DRUGS (3)
  1. HEPATITIS B VACCINE [Concomitant]
     Active Substance: HEPATITIS B VIRUS VACCINE
     Indication: IMMUNISATION
     Route: 065
  2. IPOL [Suspect]
     Active Substance: POLIOVIRUS TYPE 1 ANTIGEN (FORMALDEHYDE INACTIVATED)\POLIOVIRUS TYPE 2 ANTIGEN (FORMALDEHYDE INACTIVATED)\POLIOVIRUS TYPE 3 ANTIGEN (FORMALDEHYDE INACTIVATED)\POLIOVIRUS VACCINE INACTIVATED MONKEY KIDNEY CELL
     Indication: IMMUNISATION
     Route: 065
  3. TUBERSOL [Suspect]
     Active Substance: TUBERCULIN PURIFIED PROTEIN DERIVATIVE
     Indication: TUBERCULIN TEST
     Dosage: 1 ML
     Route: 030
     Dates: start: 20200723

REACTIONS (2)
  - Wrong product administered [Unknown]
  - Overdose [Unknown]
